FAERS Safety Report 8808654 (Version 1)
Quarter: 2012Q4

REPORT INFORMATION
  Report Type: Spontaneous
  Country: US (occurrence: None)
  Receive Date: 20120919
  Receipt Date: 20120919
  Transmission Date: 20130627
  Serious: Yes (Hospitalization)
  Sender: FDA-Public Use
  Company Number: DSA_59632_2012

PATIENT
  Sex: Male

DRUGS (1)
  1. XENAZINE 25 MG (NOT SPECIFIED) [Suspect]
     Indication: HUNTINGTON^S DISEASE
     Route: 048
     Dates: start: 20120706, end: 201208

REACTIONS (4)
  - Renal disorder [None]
  - Insomnia [None]
  - Somnolence [None]
  - Fatigue [None]
